FAERS Safety Report 7283464-8 (Version None)
Quarter: 2011Q1

REPORT INFORMATION
  Report Type: 
  Country: None (occurrence: None)
  Receive Date: 20110204
  Receipt Date: 20110204
  Transmission Date: 20110831
  Serious: No
  Sender: FDA-Public Use
  Company Number: None

PATIENT
  Age: 87 Year
  Sex: Female
  Weight: 52.6173 kg

DRUGS (2)
  1. CREST PRO HEALTH MOUTH RINSE [Suspect]
     Indication: PROPHYLAXIS
     Dosage: 1 TEASPOON 1 A DAY
     Dates: start: 20101001
  2. CREST PRO HEALTH MOUTH RINSE [Suspect]
     Indication: TOOTH DEPOSIT
     Dosage: 1 TEASPOON 1 A DAY
     Dates: start: 20101001

REACTIONS (1)
  - TOOTH DISCOLOURATION [None]
